FAERS Safety Report 9677296 (Version 5)
Quarter: 2013Q4

REPORT INFORMATION
  Report Type: Report from Study
  Country: CA (occurrence: CA)
  Receive Date: 20131108
  Receipt Date: 20131221
  Transmission Date: 20140711
  Serious: Yes (Hospitalization)
  Sender: FDA-Public Use
  Company Number: CA-ROCHE-1298697

PATIENT
  Age: 37 Year
  Sex: Male
  Weight: 72 kg

DRUGS (3)
  1. AVASTIN [Suspect]
     Indication: GLIOBLASTOMA
     Route: 042
     Dates: start: 20131018
  2. LOMUSTINE [Suspect]
     Indication: GLIOBLASTOMA
     Route: 065
     Dates: start: 20130923
  3. CARBAMAZEPINE [Concomitant]

REACTIONS (8)
  - Convulsion [Recovered/Resolved]
  - Subcutaneous abscess [Not Recovered/Not Resolved]
  - Migraine [Not Recovered/Not Resolved]
  - Diarrhoea [Unknown]
  - Constipation [Recovered/Resolved]
  - Night sweats [Not Recovered/Not Resolved]
  - Pyrexia [Not Recovered/Not Resolved]
  - Headache [Not Recovered/Not Resolved]
